FAERS Safety Report 5773967-7 (Version None)
Quarter: 2008Q2

REPORT INFORMATION
  Report Type: 
  Country: None (occurrence: None)
  Receive Date: 20080616
  Receipt Date: 20080604
  Transmission Date: 20081010
  Serious: Yes (Hospitalization)
  Sender: FDA-Public Use
  Company Number: US-BAYER-200811142BCC

PATIENT
  Age: 49 Year
  Sex: Male
  Weight: 101 kg

DRUGS (12)
  1. ALEVE [Suspect]
     Indication: DRUG USE FOR UNKNOWN INDICATION
     Route: 048
     Dates: start: 20060706, end: 20061101
  2. TICILIMUMAB [Suspect]
     Indication: MALIGNANT MELANOMA
     Route: 042
     Dates: start: 20060718, end: 20060718
  3. IBUROFEN [Suspect]
     Route: 048
     Dates: start: 20060619, end: 20061101
  4. TYLENOL [Suspect]
     Route: 048
     Dates: start: 20060619, end: 20061101
  5. ZOCOR [Concomitant]
     Indication: HYPERCHOLESTEROLAEMIA
     Route: 048
     Dates: start: 20040101
  6. XANAX [Concomitant]
     Indication: ANXIETY
     Route: 048
     Dates: start: 20060101
  7. HYDROMORPHONE HCL [Concomitant]
     Indication: PAIN IN EXTREMITY
     Route: 048
     Dates: start: 20060706
  8. ATIVAN [Concomitant]
     Indication: NAUSEA
     Route: 048
     Dates: start: 20060706
  9. NEURONTIN [Concomitant]
     Indication: PAIN IN EXTREMITY
     Route: 048
     Dates: start: 20060727
  10. SENOKOT [Concomitant]
     Indication: CONSTIPATION
     Route: 048
     Dates: start: 20060718
  11. DURAGESIC-100 [Concomitant]
     Indication: PAIN IN EXTREMITY
     Route: 062
     Dates: start: 20060815
  12. COMPAZINE [Concomitant]
     Indication: NAUSEA
     Route: 048
     Dates: start: 20060825

REACTIONS (7)
  - BLOOD CREATININE INCREASED [None]
  - CLAVICLE FRACTURE [None]
  - CONFUSIONAL STATE [None]
  - CONSTIPATION [None]
  - HYPERCALCAEMIA [None]
  - NAUSEA [None]
  - PYREXIA [None]
